FAERS Safety Report 8799156 (Version 1)
Quarter: 2012Q4

REPORT INFORMATION
  Report Type: 
  Country: US (occurrence: US)
  Receive Date: 20120920
  Receipt Date: 20120920
  Transmission Date: 20130627
  Serious: No
  Sender: FDA-Public Use
  Company Number: US-ASTRAZENECA-2012SE14363

PATIENT
  Age: 48 Year
  Sex: Female

DRUGS (23)
  1. ZESTRIL [Suspect]
     Route: 048
  2. TOPROL XL [Suspect]
     Route: 048
  3. PROVENTIL [Concomitant]
     Dosage: 2.5 MG/ 3 ML
  4. VENTOLIN [Concomitant]
     Dosage: 90 MCG/ ACT INHALER
  5. WELLBUTRIN SR [Concomitant]
  6. CELEXA [Concomitant]
  7. KLONOPIN [Concomitant]
  8. PLAVIX [Concomitant]
  9. COLACE [Concomitant]
  10. ADVAIR [Concomitant]
     Dosage: 500-50 MCG/ DOSE DISKUS INHALER
  11. IMDUR [Concomitant]
  12. NICODERM CQ [Concomitant]
  13. SINGULAIR [Concomitant]
  14. NICOTINE POLACRILEX [Concomitant]
  15. NITROSTAT [Concomitant]
     Route: 060
  16. ZOFRAN [Concomitant]
  17. ZANTAC [Concomitant]
  18. RIBOFLAVIN [Concomitant]
  19. ZOCOR [Concomitant]
  20. IMITREX [Concomitant]
  21. THEOPHYLLIN CR [Concomitant]
  22. SPIRIVA [Concomitant]
     Dosage: 18 MCG
     Route: 055
  23. ASPIRIN [Concomitant]

REACTIONS (2)
  - Cough [Unknown]
  - Drug hypersensitivity [Unknown]
